FAERS Safety Report 9114854 (Version 1)
Quarter: 2013Q1

REPORT INFORMATION
  Report Type: Spontaneous
  Country: IT (occurrence: IT)
  Receive Date: 20130128
  Receipt Date: 20130128
  Transmission Date: 20140127
  Serious: Yes (Other)
  Sender: FDA-Public Use
  Company Number: IT-TEVA-382521ISR

PATIENT
  Age: 64 Year
  Sex: Male
  Weight: 69 kg

DRUGS (1)
  1. AZITHROMYCIN [Suspect]
     Indication: PRODUCTIVE COUGH
     Dosage: 500 MILLIGRAM DAILY;
     Route: 048
     Dates: start: 20121227, end: 20121227

REACTIONS (1)
  - Dysentery [Recovered/Resolved]
